FAERS Safety Report 7302123-6 (Version None)
Quarter: 2011Q1

REPORT INFORMATION
  Report Type: 
  Country: None (occurrence: None)
  Receive Date: 20110218
  Receipt Date: 20110215
  Transmission Date: 20110831
  Serious: Yes (Hospitalization, Disabling, Other)
  Sender: FDA-Public Use
  Company Number: US-MERCK-1010USA02478

PATIENT
  Age: 57 Year
  Sex: Female

DRUGS (2)
  1. PROZAC [Concomitant]
     Route: 065
  2. FOSAMAX [Suspect]
     Indication: OSTEOPOROSIS
     Route: 048
     Dates: start: 20040101, end: 20100515

REACTIONS (2)
  - FRACTURE DELAYED UNION [None]
  - FEMUR FRACTURE [None]
